FAERS Safety Report 21575582 (Version 1)
Quarter: 2022Q4

REPORT INFORMATION
  Report Type: Spontaneous
  Country: DK (occurrence: DK)
  Receive Date: 20221110
  Receipt Date: 20221110
  Transmission Date: 20230113
  Serious: No
  Sender: FDA-Public Use
  Company Number: None

PATIENT
  Age: 17 Year
  Sex: Male

DRUGS (2)
  1. ISOTRETINOIN [Suspect]
     Active Substance: ISOTRETINOIN
     Indication: Acne
     Dosage: DOSAGE: 30 MG, STRENGTH: 20 MG , TABLET (UNCOATED, ORAL) , FREQUENCY TIME : 1 DAY , DURATION : 385 D
     Dates: start: 20200506, end: 20210526
  2. METHYLPHENIDATE [Concomitant]
     Active Substance: METHYLPHENIDATE
     Indication: Attention deficit hyperactivity disorder
     Dates: start: 20210420

REACTIONS (1)
  - Depression [Unknown]

NARRATIVE: CASE EVENT DATE: 20210526
